FAERS Safety Report 5817250-X (Version None)
Quarter: 2008Q3

REPORT INFORMATION
  Report Type: 
  Country: None (occurrence: None)
  Receive Date: 20080722
  Receipt Date: 20080715
  Transmission Date: 20090109
  Serious: Yes (Other)
  Sender: FDA-Public Use
  Company Number: US-BAYER-200819336NA

PATIENT
  Sex: Female

DRUGS (1)
  1. AVELOX [Suspect]
     Indication: PRODUCTIVE COUGH
     Route: 048
     Dates: start: 20080328

REACTIONS (7)
  - ANAPHYLACTIC REACTION [None]
  - DYSPHONIA [None]
  - MUSCLE TIGHTNESS [None]
  - NAUSEA [None]
  - STRIDOR [None]
  - THROAT TIGHTNESS [None]
  - VOMITING [None]
